FAERS Safety Report 7986887-4 (Version None)
Quarter: 2011Q4

REPORT INFORMATION
  Report Type: 
  Country: None (occurrence: None)
  Receive Date: 20111216
  Receipt Date: 20110426
  Transmission Date: 20120403
  Serious: No
  Sender: FDA-Public Use
  Company Number: US-BRISTOL-MYERS SQUIBB COMPANY-15586720

PATIENT
  Age: 58 Year
  Sex: Female

DRUGS (8)
  1. NOVOLOG [Concomitant]
  2. FLUOXETINE [Concomitant]
     Dates: start: 20100601
  3. CLONAZEPAM [Concomitant]
     Dates: start: 20100701
  4. VYTORIN [Concomitant]
  5. ABILIFY [Suspect]
     Indication: BIPOLAR DISORDER
     Dosage: STARTED AT 2 MG, THEN 4MG AND SHE WAS TITRATED UP TO A TOTAL OF 15 MG FOR A 1 WEEK PERIOD.
     Dates: start: 20100901
  6. VESICARE [Concomitant]
  7. METFORMIN HCL [Concomitant]
  8. LANTUS [Concomitant]

REACTIONS (1)
  - CATARACT [None]
